FAERS Safety Report 18587410 (Version 2)
Quarter: 2021Q1

REPORT INFORMATION
  Report Type: Spontaneous
  Country: US (occurrence: US)
  Receive Date: 20201207
  Receipt Date: 20210105
  Transmission Date: 20210419
  Serious: Yes (Hospitalization)
  Sender: FDA-Public Use
  Company Number: US-TEVA-2020-US-1853623

PATIENT
  Age: 51 Year
  Sex: Female

DRUGS (4)
  1. TACROLIMUS. [Suspect]
     Active Substance: TACROLIMUS
     Indication: IMMUNOSUPPRESSANT DRUG THERAPY
     Route: 065
  2. PREDNISONE. [Concomitant]
     Active Substance: PREDNISONE
     Indication: IMMUNOSUPPRESSANT DRUG THERAPY
     Route: 065
  3. MILRINONE [Suspect]
     Active Substance: MILRINONE
     Indication: CARDIAC FAILURE ACUTE
     Route: 065
  4. MYCOPHENOLATE MOFETIL. [Suspect]
     Active Substance: MYCOPHENOLATE MOFETIL
     Indication: IMMUNOSUPPRESSANT DRUG THERAPY
     Route: 065

REACTIONS (9)
  - Metastasis [Unknown]
  - Dysuria [Unknown]
  - Drug ineffective [Unknown]
  - Pleural effusion [Unknown]
  - Left ventricular failure [Unknown]
  - Anaplastic large-cell lymphoma [Unknown]
  - Cardiac failure acute [Unknown]
  - Renal impairment [Unknown]
  - Hypercalcaemia of malignancy [Unknown]
